FAERS Safety Report 8244907-6 (Version None)
Quarter: 2012Q1

REPORT INFORMATION
  Report Type: 
  Country: None (occurrence: None)
  Receive Date: 20120329
  Receipt Date: 20110922
  Transmission Date: 20120608
  Serious: No
  Sender: FDA-Public Use
  Company Number: US-MYLANLABS-2011S1018389

PATIENT
  Age: 76 Year
  Sex: Male

DRUGS (3)
  1. ABIRATERONE ACETATE [Concomitant]
     Dosage: ZYTIGA
  2. FENTANYL-100 [Suspect]
     Indication: PAIN
     Dosage: CHANGED Q72H
     Route: 062
     Dates: start: 20110601, end: 20110829
  3. VITAMIN D [Concomitant]
     Route: 048

REACTIONS (4)
  - NAUSEA [None]
  - RETCHING [None]
  - VOMITING [None]
  - INCORRECT DRUG ADMINISTRATION DURATION [None]
